FAERS Safety Report 8170443-1 (Version None)
Quarter: 2012Q1

REPORT INFORMATION
  Report Type: 
  Country: None (occurrence: None)
  Receive Date: 20120228
  Receipt Date: 20120217
  Transmission Date: 20120608
  Serious: Yes (Other)
  Sender: FDA-Public Use
  Company Number: HU-SANOFI-AVENTIS-2012SA011420

PATIENT
  Age: 75 Year
  Sex: Male

DRUGS (3)
  1. ALLOPURINOL [Suspect]
     Indication: OFF LABEL USE
     Route: 048
  2. INDAPAMIDE [Suspect]
     Indication: HYPERTENSION
     Route: 048
  3. ALLOPURINOL [Suspect]
     Indication: HYPERURICAEMIA
     Route: 048

REACTIONS (5)
  - LEUKOCYTOSIS [None]
  - RENAL IMPAIRMENT [None]
  - DRUG RASH WITH EOSINOPHILIA AND SYSTEMIC SYMPTOMS [None]
  - LIVER FUNCTION TEST ABNORMAL [None]
  - DRUG INTERACTION [None]
